FAERS Safety Report 20863200 (Version 1)
Quarter: 2022Q2

REPORT INFORMATION
  Report Type: Spontaneous
  Country: JP (occurrence: JP)
  Receive Date: 20220523
  Receipt Date: 20220523
  Transmission Date: 20220721
  Serious: Yes (Other)
  Sender: FDA-Public Use
  Company Number: JP-PFIZER INC-202101837672

PATIENT

DRUGS (1)
  1. INLYTA [Suspect]
     Active Substance: AXITINIB
     Dosage: UNK

REACTIONS (4)
  - Hypothyroidism [Not Recovered/Not Resolved]
  - Heavy menstrual bleeding [Unknown]
  - Skin discolouration [Recovered/Resolved]
  - Diarrhoea [Recovered/Resolved]
